FAERS Safety Report 14492537 (Version 1)
Quarter: 2018Q1

REPORT INFORMATION
  Report Type: Spontaneous
  Country: US (occurrence: US)
  Receive Date: 20180205
  Receipt Date: 20180205
  Transmission Date: 20180509
  Serious: Yes (Hospitalization)
  Sender: FDA-Public Use
  Company Number: None

PATIENT
  Age: 32 Year
  Sex: Female
  Weight: 56.7 kg

DRUGS (2)
  1. MIRENA [Suspect]
     Active Substance: LEVONORGESTREL
     Indication: CONTRACEPTION
     Dosage: 1 INJECTION(S); ONCE EVERY 5 YEARS; VAGINAL?
     Route: 067
     Dates: start: 20171201, end: 20180202
  2. MULTIVITAMIN [Concomitant]
     Active Substance: VITAMINS

REACTIONS (5)
  - Device dislocation [None]
  - Uterine perforation [None]
  - Pain [None]
  - Complication associated with device [None]
  - Muscle spasms [None]

NARRATIVE: CASE EVENT DATE: 20180202
